FAERS Safety Report 17420895 (Version 24)
Quarter: 2025Q1

REPORT INFORMATION
  Report Type: Spontaneous
  Country: US (occurrence: US)
  Receive Date: 20200214
  Receipt Date: 20250310
  Transmission Date: 20250409
  Serious: Yes (Hospitalization, Other)
  Sender: PFIZER
  Company Number: US-PFIZER INC-2020008704

PATIENT
  Age: 79 Year
  Sex: Female
  Weight: 63.5 kg

DRUGS (13)
  1. XELJANZ XR [Suspect]
     Active Substance: TOFACITINIB CITRATE
     Indication: Rheumatoid arthritis
     Dosage: 11 MG, 1X/DAY
  2. XELJANZ XR [Suspect]
     Active Substance: TOFACITINIB CITRATE
     Indication: Osteoarthritis
     Dosage: 11MG WITH FOOD WHILE EATING BREAKFAST ONCE A DAY
     Dates: start: 2019
  3. XELJANZ XR [Suspect]
     Active Substance: TOFACITINIB CITRATE
     Dosage: 11 MG, 1X/DAY
     Dates: start: 202001
  4. XELJANZ XR [Suspect]
     Active Substance: TOFACITINIB CITRATE
     Dosage: 11 MG, EVERY OTHER DAY
  5. XELJANZ XR [Suspect]
     Active Substance: TOFACITINIB CITRATE
     Dosage: 11 MG, 1X/DAY
     Dates: end: 20220503
  6. XELJANZ XR [Suspect]
     Active Substance: TOFACITINIB CITRATE
  7. XELJANZ XR [Suspect]
     Active Substance: TOFACITINIB CITRATE
  8. HYDROCODONE [Suspect]
     Active Substance: HYDROCODONE
  9. LEVOTHYROXINE [Concomitant]
     Active Substance: LEVOTHYROXINE
     Indication: Thyroid disorder
     Dosage: 88 UG, 1X/DAY
  10. AMLODIPINE [Concomitant]
     Active Substance: AMLODIPINE BESYLATE
     Dosage: 5 MG, 1X/DAY
  11. METOPROLOL [Concomitant]
     Active Substance: METOPROLOL
     Indication: Hypertension
     Dosage: 25 MG, DAILY (I TAKE TWO 12, PROBABLY 12 AND A HALF)
  12. GABAPENTIN [Concomitant]
     Active Substance: GABAPENTIN
  13. FERROUS SULFATE [Concomitant]
     Active Substance: FERROUS SULFATE
     Indication: Anaemia

REACTIONS (25)
  - Cardiac operation [Unknown]
  - Aortic stenosis [Unknown]
  - Oesophageal rupture [Not Recovered/Not Resolved]
  - Cataract [Recovered/Resolved]
  - Oesophageal obstruction [Not Recovered/Not Resolved]
  - Hip surgery [Unknown]
  - Joint arthroplasty [Unknown]
  - Spinal operation [Recovering/Resolving]
  - Knee operation [Unknown]
  - Neuropathy peripheral [Unknown]
  - Aphonia [Unknown]
  - Cough [Unknown]
  - Peripheral swelling [Recovered/Resolved]
  - Gait disturbance [Unknown]
  - Weight increased [Unknown]
  - Renal disorder [Not Recovered/Not Resolved]
  - Pain [Unknown]
  - Dizziness postural [Unknown]
  - Sitting disability [Unknown]
  - Insomnia [Unknown]
  - Weight decreased [Unknown]
  - Illness [Unknown]
  - Peripheral coldness [Unknown]
  - Condition aggravated [Unknown]
  - Off label use [Unknown]

NARRATIVE: CASE EVENT DATE: 20191201
